FAERS Safety Report 4497900-3 (Version None)
Quarter: 2004Q4

REPORT INFORMATION
  Report Type: 
  Country: None (occurrence: None)
  Receive Date: 20041104
  Receipt Date: 20041026
  Transmission Date: 20050328
  Serious: Yes (Other)
  Sender: FDA-Public Use
  Company Number: 2004241114JP

PATIENT
  Age: 50 Year
  Sex: Female

DRUGS (4)
  1. AROMASIN [Suspect]
     Indication: BREAST CANCER
     Dosage: ORAL
     Route: 048
  2. FARESTON [Suspect]
     Indication: BREAST CANCER
     Dosage: ORAL
     Route: 048
  3. TAXOTERE [Concomitant]
  4. BIOFERMIN (BACILUS SUBTILIS, STREPTOCOCCUS FAECALIS) [Concomitant]

REACTIONS (1)
  - HEPATIC CIRRHOSIS [None]
